FAERS Safety Report 9308995 (Version 1)
Quarter: 2013Q2

REPORT INFORMATION
  Report Type: Spontaneous
  Country: US (occurrence: US)
  Receive Date: 20130524
  Receipt Date: 20130524
  Transmission Date: 20140414
  Serious: Yes (Death, Hospitalization)
  Sender: FDA-Public Use
  Company Number: US-BMSGILMSD-2013-0075702

PATIENT
  Age: 37 Year
  Sex: Female

DRUGS (3)
  1. ATRIPLA [Suspect]
     Indication: HIV INFECTION
     Dosage: UNK
     Dates: start: 20130110
  2. FLUCONAZOLE [Concomitant]
     Indication: COCCIDIOIDOMYCOSIS
     Dosage: 400 MG, QD
     Dates: start: 20121011
  3. FLUCONAZOLE [Concomitant]
     Dosage: 600 MG, QD
     Dates: start: 20120919, end: 20121011

REACTIONS (5)
  - Death [Fatal]
  - Mental status changes [Unknown]
  - Failure to thrive [Unknown]
  - Weight decreased [Unknown]
  - Cough [Unknown]
